FAERS Safety Report 6945236-0 (Version None)
Quarter: 2010Q3

REPORT INFORMATION
  Report Type: 
  Country: None (occurrence: None)
  Receive Date: 20100827
  Receipt Date: 20100617
  Transmission Date: 20110219
  Serious: No
  Sender: FDA-Public Use
  Company Number: US-KINGPHARMUSA00001-K201000774

PATIENT
  Age: 6 Month

DRUGS (1)
  1. FLECTOR [Suspect]
     Dosage: 1 PATCH, SINGLE
     Route: 048
     Dates: start: 20100601, end: 20100601

REACTIONS (2)
  - ACCIDENTAL EXPOSURE [None]
  - NO ADVERSE EVENT [None]
